FAERS Safety Report 25810535 (Version 1)
Quarter: 2025Q3

REPORT INFORMATION
  Report Type: Spontaneous
  Country: US (occurrence: US)
  Receive Date: 20250917
  Receipt Date: 20250917
  Transmission Date: 20251021
  Serious: Yes (Other)
  Sender: VERICEL
  Company Number: US-VERICEL-US-VCEL-25-000299

PATIENT
  Sex: Male

DRUGS (2)
  1. BROMELAINS [Suspect]
     Active Substance: BROMELAINS
     Indication: Thermal burn
     Route: 061
     Dates: start: 20250826, end: 20250826
  2. BROMELAINS [Suspect]
     Active Substance: BROMELAINS
     Route: 061
     Dates: start: 20250827, end: 20250827

REACTIONS (2)
  - Neutropenia [Unknown]
  - Pyrexia [Unknown]
